FAERS Safety Report 12292638 (Version 1)
Quarter: 2016Q2

REPORT INFORMATION
  Report Type: Report from Study
  Country: US (occurrence: US)
  Receive Date: 20160421
  Receipt Date: 20160421
  Transmission Date: 20160815
  Serious: No
  Sender: FDA-Public Use
  Company Number: US-AMGEN-USASL2016019693

PATIENT
  Age: 44 Year
  Sex: Female
  Weight: 70.76 kg

DRUGS (1)
  1. REPATHA [Suspect]
     Active Substance: EVOLOCUMAB
     Indication: DYSLIPIDAEMIA
     Dosage: 140 MG, EVERY OTHER WEEK
     Route: 065
     Dates: start: 20160213

REACTIONS (3)
  - Swelling face [Recovering/Resolving]
  - Paranasal sinus hypersecretion [Recovering/Resolving]
  - Migraine [Recovering/Resolving]

NARRATIVE: CASE EVENT DATE: 20160223
